FAERS Safety Report 11501789 (Version 1)
Quarter: 2015Q3

REPORT INFORMATION
  Report Type: Spontaneous
  Country: US (occurrence: US)
  Receive Date: 20150914
  Receipt Date: 20150914
  Transmission Date: 20151125
  Serious: Yes (Other)
  Sender: FDA-Public Use
  Company Number: US-ASTRAZENECA-2015SE88087

PATIENT
  Sex: Male

DRUGS (3)
  1. OMEPRAZOLE RX [Suspect]
     Active Substance: OMEPRAZOLE
     Indication: DYSPEPSIA
     Route: 048
     Dates: start: 201403
  2. OMEPRAZOLE RX [Suspect]
     Active Substance: OMEPRAZOLE
     Indication: DYSPEPSIA
     Route: 048
     Dates: start: 201506
  3. NEXIUM [Suspect]
     Active Substance: ESOMEPRAZOLE MAGNESIUM
     Route: 048

REACTIONS (5)
  - Seizure [Unknown]
  - Neoplasm malignant [Unknown]
  - Eating disorder [Unknown]
  - Intentional product misuse [Unknown]
  - Loss of consciousness [Unknown]
